FAERS Safety Report 6784098-1 (Version None)
Quarter: 2010Q2

REPORT INFORMATION
  Report Type: 
  Country: None (occurrence: None)
  Receive Date: 20100622
  Receipt Date: 20100617
  Transmission Date: 20101027
  Serious: Yes (Life-Threatening, Hospitalization, Disabling)
  Sender: FDA-Public Use
  Company Number: ES-CELGENEUS-144-21880-10061766

PATIENT
  Sex: Female
  Weight: 57 kg

DRUGS (8)
  1. CC-5013 [Suspect]
     Indication: MULTIPLE MYELOMA
     Route: 048
     Dates: start: 20100521, end: 20100608
  2. CC-5013 [Suspect]
     Route: 048
     Dates: start: 20091112
  3. DEXAMETHASONE ACETATE [Suspect]
     Indication: MULTIPLE MYELOMA
     Route: 048
     Dates: start: 20100521, end: 20100608
  4. DEXAMETHASONE ACETATE [Suspect]
     Route: 048
     Dates: start: 20091112
  5. LEVOTHYROXINE SODIUM [Concomitant]
     Indication: HYPOTHYROIDISM
     Route: 048
  6. ACYCLOVIR [Concomitant]
     Indication: PROPHYLAXIS
     Route: 048
     Dates: start: 20091112, end: 20100531
  7. ADIRO [Concomitant]
     Indication: PROPHYLAXIS
     Route: 048
     Dates: start: 20091112, end: 20100601
  8. EPOGEN [Concomitant]
     Route: 058
     Dates: end: 20100531

REACTIONS (5)
  - ANAEMIA [None]
  - DIARRHOEA [None]
  - LEUKAEMIA PLASMACYTIC [None]
  - NEUTROPENIA [None]
  - THROMBOCYTOPENIA [None]
